FAERS Safety Report 15362381 (Version 2)
Quarter: 2018Q4

REPORT INFORMATION
  Report Type: Spontaneous
  Country: JP (occurrence: JP)
  Receive Date: 20180907
  Receipt Date: 20181220
  Transmission Date: 20190204
  Serious: Yes (Hospitalization)
  Sender: FDA-Public Use
  Company Number: JP-DSJP-DSJ-2018-139210

PATIENT

DRUGS (7)
  1. LIXIANA OD TABLETS [Suspect]
     Active Substance: EDOXABAN TOSYLATE
     Indication: OSTEOARTHRITIS
     Dosage: 60 MG, QD
     Route: 048
     Dates: start: 20180830
  2. LIXIANA OD TABLETS [Suspect]
     Active Substance: EDOXABAN TOSYLATE
     Indication: PATELLOFEMORAL PAIN SYNDROME
  3. FLOMOX                             /01418603/ [Concomitant]
     Active Substance: CEFCAPENE PIVOXIL HYDROCHLORIDE HYDRATE
     Dosage: 300 MG, TID
     Route: 048
     Dates: start: 20180827
  4. TAMSULOSIN HYDROCHLORIDE. [Concomitant]
     Active Substance: TAMSULOSIN HYDROCHLORIDE
     Dosage: 0.2 MG, QD
     Route: 048
     Dates: start: 20180828
  5. LIXIANA OD TABLETS [Suspect]
     Active Substance: EDOXABAN TOSYLATE
     Indication: DEEP VEIN THROMBOSIS
     Dosage: 30 MG, QD
     Route: 048
     Dates: start: 20180828, end: 20180829
  6. LOXONIN [Concomitant]
     Active Substance: LOXOPROFEN SODIUM
     Dosage: 180 MG, TID
     Route: 048
     Dates: start: 20180824
  7. REBAMIPIDE [Concomitant]
     Active Substance: REBAMIPIDE
     Dosage: 300 MG, TID
     Route: 048
     Dates: start: 20180824

REACTIONS (2)
  - Pulmonary embolism [Recovered/Resolved]
  - Venous thrombosis limb [Recovered/Resolved]

NARRATIVE: CASE EVENT DATE: 20180830
